FAERS Safety Report 18581492 (Version 1)
Quarter: 2020Q4

REPORT INFORMATION
  Report Type: Spontaneous
  Country: US (occurrence: US)
  Receive Date: 20201204
  Receipt Date: 20201204
  Transmission Date: 20210114
  Serious: No
  Sender: FDA-Public Use
  Company Number: US-ASSERTIO THERAPEUTICS, INC.-US-2019EGA001740

PATIENT
  Age: 62 Year
  Sex: Female

DRUGS (2)
  1. ZORVOLEX [Suspect]
     Active Substance: DICLOFENAC
     Indication: ARTHRALGIA
     Dosage: 18 MG, TID
     Dates: start: 20191120, end: 20191122
  2. ZORVOLEX [Suspect]
     Active Substance: DICLOFENAC
     Dosage: UNK
     Dates: start: 20191114, end: 20200109

REACTIONS (3)
  - Pain [Unknown]
  - Abdominal discomfort [Unknown]
  - Hypertension [Unknown]

NARRATIVE: CASE EVENT DATE: 201911
